FAERS Safety Report 7333642-4 (Version None)
Quarter: 2011Q1

REPORT INFORMATION
  Report Type: 
  Country: None (occurrence: None)
  Receive Date: 20110306
  Receipt Date: 20110222
  Transmission Date: 20110831
  Serious: Yes (Other)
  Sender: FDA-Public Use
  Company Number: US-ELI_LILLY_AND_COMPANY-US201101003333

PATIENT
  Sex: Female

DRUGS (2)
  1. FORTEO [Suspect]
     Indication: OSTEOPOROSIS
     Dosage: 20 UG, DAILY (1/D)
     Dates: start: 20101204
  2. FORTEO [Suspect]
     Dosage: 20 UG, DAILY (1/D)
     Dates: end: 20101231

REACTIONS (11)
  - CONSTIPATION [None]
  - MIGRAINE WITH AURA [None]
  - TRANSIENT ISCHAEMIC ATTACK [None]
  - VISUAL IMPAIRMENT [None]
  - DEPRESSED MOOD [None]
  - DECREASED APPETITE [None]
  - MALAISE [None]
  - MUSCLE SPASMS [None]
  - DRUG DOSE OMISSION [None]
  - NAUSEA [None]
  - CONDITION AGGRAVATED [None]
